FAERS Safety Report 17898849 (Version 4)
Quarter: 2021Q1

REPORT INFORMATION
  Report Type: Report from Study
  Country: ID (occurrence: ID)
  Receive Date: 20200615
  Receipt Date: 20210305
  Transmission Date: 20210419
  Serious: Yes (Hospitalization)
  Sender: FDA-Public Use
  Company Number: ID-SEATTLE GENETICS-2020SGN01148

PATIENT
  Sex: Female

DRUGS (1)
  1. BRENTUXIMAB VEDOTIN?MPI [Suspect]
     Active Substance: BRENTUXIMAB VEDOTIN
     Indication: HODGKIN^S DISEASE
     Dosage: 100 MG
     Dates: start: 20200114

REACTIONS (12)
  - Nausea [Unknown]
  - General physical health deterioration [Recovering/Resolving]
  - Pleural effusion [Unknown]
  - Peripheral swelling [Unknown]
  - Dyspnoea [Unknown]
  - Vomiting [Unknown]
  - Pyrexia [Unknown]
  - Abdominal distension [Unknown]
  - Back pain [Recovered/Resolved]
  - Nodule [Unknown]
  - Lymphadenopathy [Recovered/Resolved]
  - Cough [Unknown]
